FAERS Safety Report 10908533 (Version 1)
Quarter: 2015Q1

REPORT INFORMATION
  Report Type: Spontaneous
  Country: US (occurrence: None)
  Receive Date: 20150309
  Receipt Date: 20150309
  Transmission Date: 20150721
  Serious: Yes (Disabling)
  Sender: FDA-Public Use
  Company Number: None

PATIENT
  Age: 25 Year
  Sex: Male
  Weight: 65.77 kg

DRUGS (1)
  1. LOPERAMIDE [Suspect]
     Active Substance: LOPERAMIDE
     Indication: DIARRHOEA
     Dates: start: 20150305, end: 20150307

REACTIONS (6)
  - Headache [None]
  - Food poisoning [None]
  - Intraocular pressure increased [None]
  - Diarrhoea [None]
  - Feeling abnormal [None]
  - Condition aggravated [None]

NARRATIVE: CASE EVENT DATE: 20150305
